FAERS Safety Report 4551406-1 (Version None)
Quarter: 2005Q1

REPORT INFORMATION
  Report Type: 
  Country: None (occurrence: None)
  Receive Date: 20050111
  Receipt Date: 20050111
  Transmission Date: 20050727
  Serious: Yes (Life-Threatening, Hospitalization)
  Sender: FDA-Public Use
  Company Number: None

PATIENT
  Age: 6 Year
  Sex: Male
  Weight: 18.1439 kg

DRUGS (1)
  1. CHILDREN'S MOTRIN [Suspect]
     Indication: VARICELLA
     Dosage: 2TSP  EVERY 4 HOURS   ORAL
     Route: 048
     Dates: start: 20041223, end: 20041230

REACTIONS (1)
  - STEVENS-JOHNSON SYNDROME [None]
